FAERS Safety Report 19047488 (Version 1)
Quarter: 2021Q1

REPORT INFORMATION
  Report Type: Spontaneous
  Country: US (occurrence: US)
  Receive Date: 20210323
  Receipt Date: 20210323
  Transmission Date: 20210420
  Serious: Yes (Other)
  Sender: FDA-Public Use
  Company Number: US-ORGANON-O2103USA002283

PATIENT
  Age: 27 Year
  Sex: Female
  Weight: 124.72 kg

DRUGS (1)
  1. IMPLANON [Suspect]
     Active Substance: ETONOGESTREL
     Indication: CONTRACEPTION
     Dosage: 68 MILLIGRAM
     Route: 059

REACTIONS (6)
  - Road traffic accident [Unknown]
  - Coma [Unknown]
  - Complication associated with device [Unknown]
  - Polyp [Unknown]
  - Incorrect product administration duration [Unknown]
  - Menstruation irregular [Unknown]

NARRATIVE: CASE EVENT DATE: 202009
